FAERS Safety Report 10433142 (Version 1)
Quarter: 2014Q3

REPORT INFORMATION
  Report Type: Spontaneous
  Country: GB (occurrence: GB)
  Receive Date: 20140905
  Receipt Date: 20140905
  Transmission Date: 20150326
  Serious: Yes (Hospitalization)
  Sender: FDA-Public Use
  Company Number: GB-WATSON-2014-19101

PATIENT
  Age: 53 Year
  Sex: Female

DRUGS (5)
  1. LANSOPRAZOLE. [Concomitant]
     Active Substance: LANSOPRAZOLE
     Indication: PRODUCT USED FOR UNKNOWN INDICATION
     Dosage: 30 MG, DAILY
     Route: 065
     Dates: start: 20140730
  2. TRIMETHOPRIM. [Concomitant]
     Active Substance: TRIMETHOPRIM
     Indication: PRODUCT USED FOR UNKNOWN INDICATION
     Dosage: 200 MG, BID
     Route: 065
     Dates: start: 20140704
  3. CITALOPRAM [Suspect]
     Active Substance: CITALOPRAM HYDROBROMIDE
     Indication: DEPRESSION
     Dosage: 40 MG, QAM
     Route: 065
     Dates: start: 2008
  4. SIMVASTATIN. [Concomitant]
     Active Substance: SIMVASTATIN
     Indication: PRODUCT USED FOR UNKNOWN INDICATION
     Dosage: 40 MG, QHS
     Route: 065
  5. GAVISCON [Concomitant]
     Active Substance: ALUMINUM HYDROXIDE\MAGNESIUM CARBONATE
     Indication: PRODUCT USED FOR UNKNOWN INDICATION
     Dosage: 10 ML, PRN - FOUR TIMES DAILY AS REQUIRED
     Route: 065
     Dates: start: 20140702

REACTIONS (3)
  - Gastritis [Not Recovered/Not Resolved]
  - Abdominal pain [Not Recovered/Not Resolved]
  - Vomiting [Not Recovered/Not Resolved]
